FAERS Safety Report 4656940-1 (Version None)
Quarter: 2005Q2

REPORT INFORMATION
  Report Type: 
  Country: None (occurrence: None)
  Receive Date: 20050506
  Receipt Date: 20050428
  Transmission Date: 20051028
  Serious: Yes (Death)
  Sender: FDA-Public Use
  Company Number: FRWYE629328APR05

PATIENT
  Age: 69 Year

DRUGS (2)
  1. EFFEXOR [Suspect]
     Route: 048
     Dates: start: 20050401, end: 20050401
  2. UNSPECIFIED ANTIHYPERTENSIVE AGENT (UNSPECIFIED ANTIHYPERTENSIVE AGENT [Suspect]
     Indication: HYPERTENSION
     Dates: end: 20050401

REACTIONS (3)
  - ANAPHYLACTIC SHOCK [None]
  - FALL [None]
  - HYPOTENSION [None]
